FAERS Safety Report 8955217 (Version 1)
Quarter: 2012Q4

REPORT INFORMATION
  Report Type: 
  Country: US (occurrence: US)
  Receive Date: 20121210
  Receipt Date: 20121210
  Transmission Date: 20130627
  Serious: No
  Sender: FDA-Public Use
  Company Number: US-PFIZER INC-2012310130

PATIENT
  Age: 61 Year
  Sex: Male
  Weight: 75.74 kg

DRUGS (5)
  1. CHANTIX [Suspect]
     Indication: SMOKING CESSATION THERAPY
     Dosage: 0.5 mg, 1x/day
     Route: 048
     Dates: start: 2008, end: 2008
  2. CHANTIX [Suspect]
     Dosage: UNK
     Route: 048
     Dates: start: 2008
  3. COREG [Concomitant]
     Indication: HEART DISORDER
     Dosage: UNK
  4. ENALAPRIL [Concomitant]
     Indication: HEART DISORDER
     Dosage: UNK
  5. ECOTRIN [Concomitant]
     Indication: HEART DISORDER
     Dosage: UNK

REACTIONS (3)
  - Malaise [Unknown]
  - Nausea [Unknown]
  - Abdominal discomfort [Unknown]
